FAERS Safety Report 17829776 (Version 2)
Quarter: 2021Q1

REPORT INFORMATION
  Report Type: Spontaneous
  Country: US (occurrence: US)
  Receive Date: 20200527
  Receipt Date: 20210315
  Transmission Date: 20210419
  Serious: Yes (Hospitalization, Other)
  Sender: FDA-Public Use
  Company Number: US-SHIRE-US202017365

PATIENT
  Age: 66 Year
  Sex: Male

DRUGS (18)
  1. TRIAMCINOLON [TRIAMCINOLONE] [Concomitant]
     Active Substance: TRIAMCINOLONE
     Indication: PRODUCT USED FOR UNKNOWN INDICATION
  2. HYDROCHLOROTHIAZIDE. [Concomitant]
     Active Substance: HYDROCHLOROTHIAZIDE
  3. ASPIRIN [ACETYLSALICYLIC ACID] [Concomitant]
     Active Substance: ASPIRIN
     Indication: PRODUCT USED FOR UNKNOWN INDICATION
  4. FLUCONAZOLE. [Concomitant]
     Active Substance: FLUCONAZOLE
     Indication: PRODUCT USED FOR UNKNOWN INDICATION
  5. VITAMINS NOS [Concomitant]
     Active Substance: VITAMINS
     Indication: PRODUCT USED FOR UNKNOWN INDICATION
  6. CRESTOR [Concomitant]
     Active Substance: ROSUVASTATIN CALCIUM
     Indication: PRODUCT USED FOR UNKNOWN INDICATION
  7. ROSUVASTATIN. [Concomitant]
     Active Substance: ROSUVASTATIN
     Indication: PRODUCT USED FOR UNKNOWN INDICATION
  8. TURMERIC [CURCUMA LONGA] [Concomitant]
     Active Substance: HERBALS\TURMERIC
     Indication: PRODUCT USED FOR UNKNOWN INDICATION
  9. ZETIA [Concomitant]
     Active Substance: EZETIMIBE
     Indication: PRODUCT USED FOR UNKNOWN INDICATION
  10. CLOPIDOGREL [Concomitant]
     Active Substance: CLOPIDOGREL BISULFATE
     Indication: PRODUCT USED FOR UNKNOWN INDICATION
  11. LISINOPRIL. [Concomitant]
     Active Substance: LISINOPRIL
     Indication: PRODUCT USED FOR UNKNOWN INDICATION
  12. VALACYCLOVIR [Concomitant]
     Active Substance: VALACYCLOVIR HYDROCHLORIDE
     Indication: PRODUCT USED FOR UNKNOWN INDICATION
  13. GABAPENTIN. [Concomitant]
     Active Substance: GABAPENTIN
  14. NIFEDIPINE. [Concomitant]
     Active Substance: NIFEDIPINE
  15. PLAVIX [Concomitant]
     Active Substance: CLOPIDOGREL BISULFATE
     Indication: PRODUCT USED FOR UNKNOWN INDICATION
  16. VPRIV [Suspect]
     Active Substance: VELAGLUCERASE ALFA
     Indication: GAUCHER^S DISEASE
     Dosage: 4000 INTERNATIONAL UNIT, 1X/2WKS
     Route: 042
     Dates: start: 20180209
  17. EZETIMIBE. [Concomitant]
     Active Substance: EZETIMIBE
     Indication: PRODUCT USED FOR UNKNOWN INDICATION
  18. VPRIV [Suspect]
     Active Substance: VELAGLUCERASE ALFA
     Dosage: 400 UNK
     Route: 042
     Dates: start: 20180208

REACTIONS (2)
  - SARS-CoV-2 test positive [Recovered/Resolved]
  - Hospitalisation [Unknown]

NARRATIVE: CASE EVENT DATE: 20210226
